FAERS Safety Report 6919233-5 (Version None)
Quarter: 2010Q3

REPORT INFORMATION
  Report Type: 
  Country: None (occurrence: None)
  Receive Date: 20100811
  Receipt Date: 20100803
  Transmission Date: 20110219
  Serious: Yes (Hospitalization)
  Sender: FDA-Public Use
  Company Number: GB-ROCHE-719420

PATIENT
  Age: 33 Year
  Sex: Female

DRUGS (3)
  1. XENICAL [Suspect]
     Indication: WEIGHT CONTROL
     Route: 065
     Dates: start: 20070101
  2. XENICAL [Suspect]
     Route: 065
     Dates: start: 20080101
  3. XENICAL [Suspect]
     Dosage: TAKEN FOR 2 WEEKS
     Route: 065
     Dates: start: 20100101

REACTIONS (4)
  - CHEST PAIN [None]
  - DEPRESSED MOOD [None]
  - DYSPNOEA [None]
  - PAIN [None]
